FAERS Safety Report 25454885 (Version 2)
Quarter: 2025Q3

REPORT INFORMATION
  Report Type: Spontaneous
  Country: US (occurrence: US)
  Receive Date: 20250619
  Receipt Date: 20250717
  Transmission Date: 20251021
  Serious: No
  Sender: ALEXION PHARMACEUTICALS
  Company Number: US-AstraZeneca-CH-00887602A

PATIENT
  Age: 72 Year
  Sex: Female

DRUGS (2)
  1. FARXIGA [Suspect]
     Active Substance: DAPAGLIFLOZIN PROPANEDIOL
     Route: 065
  2. TOPROL XL [Suspect]
     Active Substance: METOPROLOL SUCCINATE
     Route: 065

REACTIONS (7)
  - Urticaria [Not Recovered/Not Resolved]
  - Ovarian cyst [Unknown]
  - Product dose omission issue [Recovered/Resolved with Sequelae]
  - Ovarian enlargement [Unknown]
  - Drug ineffective [Unknown]
  - Gait disturbance [Unknown]
  - Abdominal pain [Unknown]

NARRATIVE: CASE EVENT DATE: 20250629
